FAERS Safety Report 11303340 (Version 3)
Quarter: 2015Q3

REPORT INFORMATION
  Report Type: Spontaneous
  Country: US (occurrence: US)
  Receive Date: 20150723
  Receipt Date: 20150902
  Transmission Date: 20151125
  Serious: Yes (Death)
  Sender: FDA-Public Use
  Company Number: PHEH2015US014173

PATIENT
  Sex: Female
  Weight: 78.2 kg

DRUGS (1)
  1. GLEEVEC [Suspect]
     Active Substance: IMATINIB MESYLATE
     Indication: PRODUCT USED FOR UNKNOWN INDICATION
     Dosage: 400 MG, QD (ONE DOSE)
     Route: 048
     Dates: start: 20150718

REACTIONS (2)
  - Hepatic failure [Fatal]
  - Off label use [Unknown]
